FAERS Safety Report 4601742-5 (Version None)
Quarter: 2005Q1

REPORT INFORMATION
  Report Type: 
  Country: None (occurrence: None)
  Receive Date: 20050131
  Receipt Date: 20040916
  Transmission Date: 20050727
  Serious: No
  Sender: FDA-Public Use
  Company Number: 200414360US

PATIENT
  Age: 37 Year
  Sex: Male

DRUGS (4)
  1. KETEK [Suspect]
     Indication: SINUSITIS
     Dosage: 800 MG QD PO
     Route: 048
     Dates: start: 20040604
  2. FLUTICASONE PROPIONATE, SALMETEROL XINAFOATE (ADVAIR) [Concomitant]
  3. MONTELUKAST SODIUM [Concomitant]
  4. NASAL SPRAY (NOS) [Concomitant]

REACTIONS (1)
  - VISION BLURRED [None]
